FAERS Safety Report 4581370-0 (Version None)
Quarter: 2005Q1

REPORT INFORMATION
  Report Type: 
  Country: None (occurrence: None)
  Receive Date: 20050214
  Receipt Date: 20041007
  Transmission Date: 20050727
  Serious: No
  Sender: FDA-Public Use
  Company Number: US-GLAXOSMITHKLINE-A0528997A

PATIENT
  Sex: Male

DRUGS (3)
  1. LAMICTAL [Suspect]
     Indication: BIPOLAR DISORDER
     Dosage: 200MG PER DAY
     Route: 048
     Dates: start: 20040101
  2. WELLBUTRIN XL [Concomitant]
  3. PAXIL CR [Concomitant]

REACTIONS (5)
  - MALAISE [None]
  - MYOPATHY [None]
  - NEUROPATHY PERIPHERAL [None]
  - PYREXIA [None]
  - SKIN BURNING SENSATION [None]
